FAERS Safety Report 4743889-9 (Version None)
Quarter: 2005Q3

REPORT INFORMATION
  Report Type: 
  Country: None (occurrence: None)
  Receive Date: 20050812
  Receipt Date: 20050711
  Transmission Date: 20060218
  Serious: Yes (Disabling, Other)
  Sender: FDA-Public Use
  Company Number: US-MERCK-0507USA01513

PATIENT
  Age: 73 Year
  Sex: Male
  Weight: 82 kg

DRUGS (5)
  1. VIOXX [Suspect]
     Indication: ARTHRALGIA
     Route: 048
     Dates: start: 19991018, end: 20030929
  2. ZOCOR [Concomitant]
     Route: 048
  3. ATENOLOL [Concomitant]
     Route: 065
  4. ASPIRIN [Concomitant]
     Route: 065
  5. VITAMINS (UNSPECIFIED) [Concomitant]
     Route: 065

REACTIONS (3)
  - CEREBROVASCULAR ACCIDENT [None]
  - EYE INJURY [None]
  - VISUAL DISTURBANCE [None]
